FAERS Safety Report 7969029-0 (Version None)
Quarter: 2011Q4

REPORT INFORMATION
  Report Type: 
  Country: None (occurrence: None)
  Receive Date: 20111209
  Receipt Date: 20111128
  Transmission Date: 20120403
  Serious: Yes (Hospitalization, Other)
  Sender: FDA-Public Use
  Company Number: US-VERTEX PHARMACEUTICALS INC.-AE-2011-004693

PATIENT
  Sex: Male
  Weight: 111.23 kg

DRUGS (3)
  1. INCIVEK [Suspect]
     Indication: HEPATITIS C
     Dates: start: 20111001, end: 20111110
  2. INTERFERON [Concomitant]
     Indication: HEPATITIS C
     Dates: end: 20111110
  3. RIBAVIRIN [Concomitant]
     Indication: HEPATITIS C
     Dates: end: 20111110

REACTIONS (2)
  - WHITE BLOOD CELL COUNT DECREASED [None]
  - ANAEMIA [None]
